FAERS Safety Report 14978878 (Version 32)
Quarter: 2021Q2

REPORT INFORMATION
  Report Type: Spontaneous
  Country: FR (occurrence: FR)
  Receive Date: 20180606
  Receipt Date: 20210504
  Transmission Date: 20210716
  Serious: Yes (Other)
  Sender: FDA-Public Use
  Company Number: FR-ELI_LILLY_AND_COMPANY-FR201804004797

PATIENT
  Age: 0 Year
  Weight: 1.89 kg

DRUGS (136)
  1. TARDYFERON [Suspect]
     Active Substance: FERROUS SULFATE
     Indication: NORMOCHROMIC NORMOCYTIC ANAEMIA
     Dosage: 1 DF, DAILY
     Route: 064
     Dates: start: 20170313, end: 20170914
  2. FOLIC ACID. [Suspect]
     Active Substance: FOLIC ACID
     Indication: NORMOCHROMIC NORMOCYTIC ANAEMIA
     Dosage: 5 MG, DAILY
     Route: 064
     Dates: start: 20170224, end: 20170313
  3. FOLIC ACID. [Suspect]
     Active Substance: FOLIC ACID
     Dosage: 5 MG, DAILY
     Route: 064
     Dates: start: 20170313, end: 20170313
  4. FOLIC ACID. [Suspect]
     Active Substance: FOLIC ACID
     Dosage: 5 MG, DAILY
     Route: 064
     Dates: start: 20170224, end: 20170914
  5. GABAPENTINE [Suspect]
     Active Substance: GABAPENTIN
     Dosage: 400 MG, DAILY
     Route: 064
     Dates: start: 20160930
  6. LOXEN                              /00639802/ [Suspect]
     Active Substance: NICARDIPINE HYDROCHLORIDE
     Dosage: 50 MG, UNKNOWN
     Route: 064
     Dates: start: 20170313, end: 20170405
  7. LOXEN                              /00639802/ [Suspect]
     Active Substance: NICARDIPINE HYDROCHLORIDE
     Dosage: 01 DF, DAILY
     Route: 064
     Dates: start: 20170313, end: 20170405
  8. METFORMIN [Suspect]
     Active Substance: METFORMIN HYDROCHLORIDE
     Indication: TYPE 2 DIABETES MELLITUS
     Dosage: 1700 MG, DAILY
     Route: 064
     Dates: start: 20160930, end: 20170224
  9. METFORMIN [Suspect]
     Active Substance: METFORMIN HYDROCHLORIDE
     Dosage: 1700 MG, DAILY
     Route: 064
     Dates: start: 20170804
  10. LABETALOL HCL [Suspect]
     Active Substance: LABETALOL HYDROCHLORIDE
     Indication: HYPERTENSION
     Dosage: 80 MG, DAILY
     Route: 064
     Dates: start: 20170516, end: 20170914
  11. CHLORPROMAZINE HYDROCHLORIDE. [Suspect]
     Active Substance: CHLORPROMAZINE HYDROCHLORIDE
     Indication: BIPOLAR I DISORDER
     Dosage: 25 MG, DAILY
     Route: 064
     Dates: start: 20170720
  12. FUROSEMIDE. [Suspect]
     Active Substance: FUROSEMIDE
     Indication: HYPERTENSION
     Dosage: 40 MG, UNKNOWN
     Route: 064
     Dates: start: 20170516
  13. TRAMADOL HYDROCHLORIDE. [Suspect]
     Active Substance: TRAMADOL HYDROCHLORIDE
     Dosage: 50 MG, DAILY
     Route: 064
     Dates: start: 20160930, end: 20170306
  14. FORLAX [MACROGOL 4000] [Suspect]
     Active Substance: POLYETHYLENE GLYCOL 4000
     Indication: CONSTIPATION
     Dosage: 1 DF, DAILY
     Route: 064
     Dates: start: 20160930, end: 20170405
  15. FOLINIC ACID [Suspect]
     Active Substance: LEUCOVORIN
     Indication: NORMOCHROMIC NORMOCYTIC ANAEMIA
     Dosage: 5 MG, ONCE DAILY (QD)
     Route: 064
     Dates: start: 20170224, end: 20170313
  16. INSULIN [Suspect]
     Active Substance: INSULIN NOS
     Indication: TYPE 2 DIABETES MELLITUS
     Dosage: UNK
     Route: 064
     Dates: start: 20161230, end: 20170224
  17. HUMALOG [Suspect]
     Active Substance: INSULIN LISPRO
     Indication: TYPE 2 DIABETES MELLITUS
     Dosage: 21 UG/M2, DAILY
     Route: 064
     Dates: start: 20170224, end: 20170914
  18. METHYLDOPA MSD [Suspect]
     Active Substance: METHYLDOPA
     Dosage: 15000 MG, ONCE DAILY (QD)
     Route: 064
     Dates: start: 20170720
  19. AMOXICILLINE                       /00249603/ [Suspect]
     Active Substance: AMOXICILLIN SODIUM
     Indication: PRODUCT USED FOR UNKNOWN INDICATION
     Dosage: 3 G, DAILY
     Route: 064
     Dates: start: 20170804, end: 20170811
  20. AMOXICILLINE                       /00249603/ [Suspect]
     Active Substance: AMOXICILLIN SODIUM
     Dosage: 1 G, DAILY
     Route: 064
     Dates: start: 201708, end: 20180811
  21. GABAPENTINE [Suspect]
     Active Substance: GABAPENTIN
     Indication: DIABETIC NEUROPATHY
     Dosage: 800 MG, DAILY
     Route: 064
     Dates: start: 20160930
  22. GABAPENTINE [Suspect]
     Active Substance: GABAPENTIN
     Dosage: 400 MG, DAILY
     Route: 064
     Dates: start: 20160930
  23. DIFFU?K [Suspect]
     Active Substance: POTASSIUM CHLORIDE
     Indication: HYPOKALAEMIA
     Dosage: 1200 MG, 2 TO 3 TIMES PER DAY
     Route: 064
     Dates: start: 20170804
  24. GLICLAZIDE [Suspect]
     Active Substance: GLICLAZIDE
     Dosage: 120 MG, DAILY
     Route: 064
     Dates: start: 20170224
  25. NICARDIPINE HYDROCHLORIDE. [Suspect]
     Active Substance: NICARDIPINE HYDROCHLORIDE
     Indication: HYPERTENSION
     Dosage: 50 MG, BID
     Route: 064
     Dates: start: 20170405
  26. NICARDIPINE HYDROCHLORIDE. [Suspect]
     Active Substance: NICARDIPINE HYDROCHLORIDE
     Dosage: 50 MG, UNKNOWN
     Route: 064
     Dates: start: 20170313
  27. METFORMIN [Suspect]
     Active Substance: METFORMIN HYDROCHLORIDE
     Dosage: 1700 MG, DAILY
     Route: 064
     Dates: start: 20170804
  28. ARIPIPRAZOLE. [Suspect]
     Active Substance: ARIPIPRAZOLE
     Indication: BIPOLAR I DISORDER
     Dosage: 10 MG, DAILY
     Route: 064
     Dates: start: 20160930, end: 20170224
  29. ARIPIPRAZOLE. [Suspect]
     Active Substance: ARIPIPRAZOLE
     Dosage: 10 MG, DAILY
     Route: 064
     Dates: start: 20170224
  30. LANTUS [Suspect]
     Active Substance: INSULIN GLARGINE
     Dosage: 20 MG, DAILY
     Route: 064
     Dates: start: 20170224, end: 20170914
  31. LANTUS [Suspect]
     Active Substance: INSULIN GLARGINE
     Dosage: 20 MG, DAILY
     Route: 064
     Dates: start: 20170224, end: 20170914
  32. TRAMADOL HYDROCHLORIDE. [Suspect]
     Active Substance: TRAMADOL HYDROCHLORIDE
     Indication: DIABETIC NEUROPATHY
     Dosage: 100 MG, DAILY
     Route: 064
     Dates: start: 20160930, end: 20170306
  33. TRAMADOL HYDROCHLORIDE. [Suspect]
     Active Substance: TRAMADOL HYDROCHLORIDE
     Dosage: 50 MG, DAILY
     Route: 064
     Dates: start: 20170306
  34. HUMALOG [Suspect]
     Active Substance: INSULIN LISPRO
     Indication: TYPE 2 DIABETES MELLITUS
     Dosage: 21 UG/M2, DAILY
     Route: 064
     Dates: start: 20170224, end: 20170914
  35. HUMALOG [Suspect]
     Active Substance: INSULIN LISPRO
     Dosage: 7 UG/M2, DAILY
     Route: 064
     Dates: start: 20170224, end: 20170224
  36. HUMALOG [Suspect]
     Active Substance: INSULIN LISPRO
     Dosage: 21 UG/M2, UNKNOWN
     Route: 065
     Dates: start: 20170224, end: 20170224
  37. FOLIC ACID. [Suspect]
     Active Substance: FOLIC ACID
     Indication: NORMOCHROMIC NORMOCYTIC ANAEMIA
     Dosage: 5 MG, DAILY
     Route: 064
     Dates: start: 20170224, end: 20170313
  38. FOLIC ACID. [Suspect]
     Active Substance: FOLIC ACID
     Dosage: 5 MG, DAILY
     Route: 064
     Dates: start: 20170313, end: 20170313
  39. METHYLDOPA MSD [Suspect]
     Active Substance: METHYLDOPA
     Indication: HYPERTENSION
     Dosage: 1500 MG, DAILY
     Route: 064
     Dates: start: 20170720
  40. NICOPATCH [Suspect]
     Active Substance: NICOTINE
     Dosage: 7 MG, DAILY
     Route: 064
     Dates: start: 20170224, end: 20170516
  41. AMOXICILLINE                       /00249603/ [Suspect]
     Active Substance: AMOXICILLIN SODIUM
     Dosage: 3 G, DAILY
     Route: 064
     Dates: start: 20170804, end: 20170804
  42. AMOXICILLINE                       /00249603/ [Suspect]
     Active Substance: AMOXICILLIN SODIUM
     Dosage: 1 UNK, UNKNOWN
     Route: 064
     Dates: start: 20170804, end: 20170811
  43. GABAPENTINE [Suspect]
     Active Substance: GABAPENTIN
     Indication: DIABETIC NEUROPATHY
     Dosage: 800 MG, DAILY
     Route: 064
     Dates: start: 20160930
  44. GABAPENTINE [Suspect]
     Active Substance: GABAPENTIN
     Dosage: 80 MG, ONCE DAILY (QD)
     Route: 048
     Dates: start: 20160930
  45. DIFFU?K [Suspect]
     Active Substance: POTASSIUM CHLORIDE
     Dosage: 3600 MG, DAILY
     Route: 064
     Dates: start: 20170804
  46. LOXEN                              /00639802/ [Suspect]
     Active Substance: NICARDIPINE HYDROCHLORIDE
     Indication: HYPERTENSION
     Dosage: 100 MG, UNKNOWN
     Route: 064
     Dates: start: 20170313, end: 20170405
  47. LOXEN                              /00639802/ [Suspect]
     Active Substance: NICARDIPINE HYDROCHLORIDE
     Dosage: 01 DF, DAILY
     Route: 064
     Dates: start: 20170313, end: 20170405
  48. LOXEN                              /00639802/ [Suspect]
     Active Substance: NICARDIPINE HYDROCHLORIDE
     Dosage: UNK, UNKNOWN
     Route: 064
     Dates: start: 20170516
  49. LOXEN                              /00639802/ [Suspect]
     Active Substance: NICARDIPINE HYDROCHLORIDE
     Dosage: UNK, UNKNOWN
     Route: 064
     Dates: start: 20170516
  50. NICARDIPINE HYDROCHLORIDE. [Suspect]
     Active Substance: NICARDIPINE HYDROCHLORIDE
     Dosage: UNK, UNKNOWN
     Route: 064
     Dates: start: 20170516
  51. LAROXYL [Suspect]
     Active Substance: AMITRIPTYLINE HYDROCHLORIDE
     Indication: DIABETIC NEUROPATHY
     Dosage: 2 DF, DAILY
     Route: 064
     Dates: start: 20160930, end: 20170914
  52. METFORMIN [Suspect]
     Active Substance: METFORMIN HYDROCHLORIDE
     Dosage: 850 MG, DAILY
     Route: 064
     Dates: start: 20170224
  53. RAMIPRIL. [Suspect]
     Active Substance: RAMIPRIL
     Indication: HYPERTENSION
     Dosage: 2.5 MG, DAILY
     Route: 064
     Dates: start: 20160930, end: 20170224
  54. FORLAX [MACROGOL 4000] [Suspect]
     Active Substance: POLYETHYLENE GLYCOL 4000
     Indication: NORMOCHROMIC NORMOCYTIC ANAEMIA
     Dosage: 120 MG, DAILY
     Route: 064
     Dates: start: 20160930, end: 20170224
  55. CALCIUM FOLINATE [Suspect]
     Active Substance: LEUCOVORIN CALCIUM
     Indication: NORMOCHROMIC NORMOCYTIC ANAEMIA
     Dosage: 5 MG, DAILY
     Route: 064
     Dates: start: 20170224, end: 20170513
  56. HUMALOG [Suspect]
     Active Substance: INSULIN LISPRO
     Dosage: 7 UG/M2, DAILY
     Route: 064
     Dates: start: 20170224, end: 20170224
  57. TARDYFERON [Suspect]
     Active Substance: FERROUS SULFATE
     Indication: NORMOCHROMIC NORMOCYTIC ANAEMIA
     Dosage: 1 DF, DAILY
     Route: 064
     Dates: start: 20170313, end: 20170914
  58. FOLIC ACID. [Suspect]
     Active Substance: FOLIC ACID
     Dosage: 5 MG, DAILY
     Route: 064
     Dates: start: 20170224, end: 20170914
  59. NICOPATCH [Suspect]
     Active Substance: NICOTINE
     Indication: EX-TOBACCO USER
     Dosage: 7 MG, DAILY
     Route: 064
     Dates: start: 20170224, end: 20170914
  60. GABAPENTINE [Suspect]
     Active Substance: GABAPENTIN
     Dosage: 80 MG, ONCE DAILY (QD)
     Route: 048
     Dates: start: 20160930
  61. DIFFU?K [Suspect]
     Active Substance: POTASSIUM CHLORIDE
     Dosage: 1200 MG, DAILY
     Route: 065
     Dates: start: 20170804
  62. LEVEMIR [Suspect]
     Active Substance: INSULIN DETEMIR
     Indication: TYPE 2 DIABETES MELLITUS
     Dosage: 10 IU, ONCE DAILY (QD)
     Route: 064
     Dates: start: 20160930, end: 20170224
  63. LOXEN                              /00639802/ [Suspect]
     Active Substance: NICARDIPINE HYDROCHLORIDE
     Indication: HYPERTENSION
     Dosage: 100 MG, UNKNOWN
     Route: 064
     Dates: start: 20170313, end: 20170405
  64. LOXEN                              /00639802/ [Suspect]
     Active Substance: NICARDIPINE HYDROCHLORIDE
     Dosage: 50 MG, BID
     Route: 065
     Dates: start: 20170405, end: 20170914
  65. LARGACTIL                          /00011901/ [Suspect]
     Active Substance: CHLORPROMAZINE
     Indication: HYPERTENSION
     Dosage: 0.5 DF, UNKNOWN
     Route: 064
  66. LAROXYL [Suspect]
     Active Substance: AMITRIPTYLINE HYDROCHLORIDE
     Dosage: 2 DF, ONCE DAILY (QD)
     Route: 064
     Dates: start: 20160930
  67. LAROXYL [Suspect]
     Active Substance: AMITRIPTYLINE HYDROCHLORIDE
     Dosage: 2 DF, ONCE DAILY (QD)
     Route: 064
     Dates: start: 20160930
  68. LASIX [Suspect]
     Active Substance: FUROSEMIDE
     Indication: HYPERTENSION
     Dosage: 40 MG, UNKNOWN
     Route: 064
     Dates: start: 20170516
  69. LASIX [Suspect]
     Active Substance: FUROSEMIDE
     Dosage: 50 MG, UNKNOWN
     Route: 064
     Dates: start: 201705
  70. FOLINIC ACID [Suspect]
     Active Substance: LEUCOVORIN
     Dosage: 5 MG, DAILY
     Route: 064
     Dates: start: 20170224, end: 20170914
  71. INSULIN PORCINE [Suspect]
     Active Substance: INSULIN PORK\INSULIN PURIFIED PORK
     Indication: TYPE 2 DIABETES MELLITUS
     Dosage: UNK, UNKNOWN
     Route: 064
     Dates: start: 20160930, end: 20170224
  72. CALCIUM FOLINATE [Suspect]
     Active Substance: LEUCOVORIN CALCIUM
     Indication: NORMOCHROMIC NORMOCYTIC ANAEMIA
     Dosage: 5 MG, DAILY
     Route: 064
     Dates: start: 20170224, end: 20170513
  73. NICOPATCH [Suspect]
     Active Substance: NICOTINE
     Dosage: 7 MG, DAILY
     Route: 064
     Dates: start: 20170224, end: 20170516
  74. AMOXICILLINE                       /00249603/ [Suspect]
     Active Substance: AMOXICILLIN SODIUM
     Dosage: 1 UNK, UNKNOWN
     Route: 064
     Dates: start: 20170804, end: 20170811
  75. DIFFU?K [Suspect]
     Active Substance: POTASSIUM CHLORIDE
     Indication: HYPOKALAEMIA
     Dosage: 1200 MG, 2 TO 3 TIMES PER DAY
     Route: 064
     Dates: start: 20170804
  76. DIFFU?K [Suspect]
     Active Substance: POTASSIUM CHLORIDE
     Dosage: 3600 MG, DAILY
     Route: 064
     Dates: start: 20170804
  77. LEVEMIR [Suspect]
     Active Substance: INSULIN DETEMIR
     Indication: TYPE 2 DIABETES MELLITUS
     Dosage: 10 IU, ONCE DAILY (QD)
     Route: 064
     Dates: start: 20160930, end: 20170224
  78. GLICLAZIDE [Suspect]
     Active Substance: GLICLAZIDE
     Indication: TYPE 2 DIABETES MELLITUS
     Dosage: 120 MG, DAILY
     Route: 064
     Dates: start: 20160930, end: 20170224
  79. LARGACTIL                          /00011901/ [Suspect]
     Active Substance: CHLORPROMAZINE
     Indication: HYPERTENSION
     Dosage: 0.5 DF, UNKNOWN
     Route: 064
  80. NICARDIPINE HYDROCHLORIDE. [Suspect]
     Active Substance: NICARDIPINE HYDROCHLORIDE
     Indication: HYPERTENSION
     Dosage: 50 MG, BID
     Route: 064
     Dates: start: 20170405
  81. LAROXYL [Suspect]
     Active Substance: AMITRIPTYLINE HYDROCHLORIDE
     Indication: DIABETIC NEUROPATHY
     Dosage: 2 DF, DAILY
     Route: 064
     Dates: start: 20160930, end: 20170914
  82. MACROGOL BIOGARAN [Suspect]
     Active Substance: POLYETHYLENE GLYCOLS
     Indication: CONSTIPATION
     Dosage: 1 DF, DAILY
     Route: 064
     Dates: start: 20160930, end: 20170405
  83. METFORMIN [Suspect]
     Active Substance: METFORMIN HYDROCHLORIDE
     Dosage: 850 MG, DAILY
     Route: 064
     Dates: start: 20160930, end: 20170224
  84. CHLORPROMAZINE HYDROCHLORIDE. [Suspect]
     Active Substance: CHLORPROMAZINE HYDROCHLORIDE
     Indication: BIPOLAR I DISORDER
     Dosage: 25 MG, DAILY
     Route: 064
     Dates: start: 20170720
  85. FUROSEMIDE. [Suspect]
     Active Substance: FUROSEMIDE
     Indication: HYPERTENSION
     Dosage: 40 MG, UNKNOWN
     Route: 064
     Dates: start: 20170516
  86. TRAMADOL HYDROCHLORIDE. [Suspect]
     Active Substance: TRAMADOL HYDROCHLORIDE
     Dosage: 50 MG, DAILY
     Route: 064
     Dates: start: 20170306
  87. FORLAX [MACROGOL 4000] [Suspect]
     Active Substance: POLYETHYLENE GLYCOL 4000
     Indication: CONSTIPATION
     Dosage: 1 DF, DAILY
     Route: 064
     Dates: start: 20160930, end: 20170405
  88. FORLAX [MACROGOL 4000] [Suspect]
     Active Substance: POLYETHYLENE GLYCOL 4000
     Indication: TYPE 2 DIABETES MELLITUS
     Dosage: 1 DF, DAILY
     Route: 064
     Dates: start: 20170313
  89. INSULIN PORCINE [Suspect]
     Active Substance: INSULIN PORK\INSULIN PURIFIED PORK
     Indication: TYPE 2 DIABETES MELLITUS
     Dosage: UNK, UNKNOWN
     Route: 064
     Dates: start: 20160930, end: 20170224
  90. METHYLDOPA MSD [Suspect]
     Active Substance: METHYLDOPA
     Dosage: 500 MG, DAILY
     Route: 064
     Dates: start: 20170720
  91. AMOXICILLINE                       /00249603/ [Suspect]
     Active Substance: AMOXICILLIN SODIUM
     Indication: PRODUCT USED FOR UNKNOWN INDICATION
     Dosage: 3 G, DAILY
     Route: 064
     Dates: start: 20170804, end: 20170811
  92. AMOXICILLINE                       /00249603/ [Suspect]
     Active Substance: AMOXICILLIN SODIUM
     Dosage: 3 G, DAILY
     Route: 064
     Dates: start: 20170804, end: 20170804
  93. DIFFU?K [Suspect]
     Active Substance: POTASSIUM CHLORIDE
     Dosage: 1200 MG, DAILY
     Route: 065
     Dates: start: 20170804
  94. LOXEN                              /00639802/ [Suspect]
     Active Substance: NICARDIPINE HYDROCHLORIDE
     Dosage: 50 MG, UNKNOWN
     Route: 064
     Dates: start: 20170313, end: 20170405
  95. LARGACTIL                          /00011901/ [Suspect]
     Active Substance: CHLORPROMAZINE
     Indication: BIPOLAR I DISORDER
     Dosage: 25 MG, DAILY
     Route: 064
     Dates: start: 20170720
  96. NICARDIPINE HYDROCHLORIDE. [Suspect]
     Active Substance: NICARDIPINE HYDROCHLORIDE
     Dosage: 50 MG, UNKNOWN
     Route: 064
     Dates: start: 20170405, end: 20170914
  97. MACROGOL BIOGARAN [Suspect]
     Active Substance: POLYETHYLENE GLYCOLS
     Indication: CONSTIPATION
     Dosage: 1 DF, DAILY
     Route: 064
     Dates: start: 20160930, end: 20170405
  98. METFORMIN [Suspect]
     Active Substance: METFORMIN HYDROCHLORIDE
     Dosage: 850 MG, DAILY
     Route: 064
     Dates: start: 20160930, end: 20170224
  99. ARIPIPRAZOLE. [Suspect]
     Active Substance: ARIPIPRAZOLE
     Indication: BIPOLAR I DISORDER
     Dosage: 10 MG, DAILY
     Route: 064
     Dates: start: 20160930, end: 20170224
  100. ARIPIPRAZOLE. [Suspect]
     Active Substance: ARIPIPRAZOLE
     Dosage: 10 MG, DAILY
     Route: 064
     Dates: start: 20170224
  101. RAMIPRIL. [Suspect]
     Active Substance: RAMIPRIL
     Dosage: 2.5 MG, DAILY
     Route: 064
     Dates: start: 20170224
  102. LANTUS [Suspect]
     Active Substance: INSULIN GLARGINE
     Indication: TYPE 2 DIABETES MELLITUS
     Dosage: 20 IU, DAILY
     Route: 064
     Dates: start: 20170224, end: 20170914
  103. FUROSEMIDE. [Suspect]
     Active Substance: FUROSEMIDE
     Dosage: 50 UNK
     Route: 065
  104. TRAMADOL HYDROCHLORIDE. [Suspect]
     Active Substance: TRAMADOL HYDROCHLORIDE
     Dosage: 50 MG, DAILY
     Route: 064
     Dates: start: 20160930, end: 20170306
  105. LASIX [Suspect]
     Active Substance: FUROSEMIDE
     Indication: HYPERTENSION
     Dosage: 40 MG, UNKNOWN
     Route: 064
     Dates: start: 20170516
  106. LASIX [Suspect]
     Active Substance: FUROSEMIDE
     Dosage: 50 MG, UNKNOWN
     Route: 064
     Dates: start: 201705
  107. HUMALOG [Suspect]
     Active Substance: INSULIN LISPRO
     Dosage: 21 UG/M2, UNKNOWN
     Route: 065
     Dates: start: 20170224, end: 20170224
  108. METHYLDOPA MSD [Suspect]
     Active Substance: METHYLDOPA
     Indication: HYPERTENSION
     Dosage: 1500 MG, DAILY
     Route: 064
     Dates: start: 20170720
  109. METHYLDOPA MSD [Suspect]
     Active Substance: METHYLDOPA
     Dosage: 15000 MG, ONCE DAILY (QD)
     Route: 064
     Dates: start: 20170720
  110. LOXEN                              /00639802/ [Suspect]
     Active Substance: NICARDIPINE HYDROCHLORIDE
     Dosage: 50 MG, BID
     Route: 065
     Dates: start: 20170405, end: 20170914
  111. GLICLAZIDE [Suspect]
     Active Substance: GLICLAZIDE
     Indication: TYPE 2 DIABETES MELLITUS
     Dosage: 120 MG, DAILY
     Route: 064
     Dates: start: 20160930, end: 20170224
  112. LARGACTIL                          /00011901/ [Suspect]
     Active Substance: CHLORPROMAZINE
     Indication: BIPOLAR I DISORDER
     Dosage: 25 MG, DAILY
     Route: 064
     Dates: start: 20170720
  113. NICARDIPINE HYDROCHLORIDE. [Suspect]
     Active Substance: NICARDIPINE HYDROCHLORIDE
     Dosage: 50 MG, UNKNOWN
     Route: 064
     Dates: start: 20170405, end: 20170914
  114. NICARDIPINE HYDROCHLORIDE. [Suspect]
     Active Substance: NICARDIPINE HYDROCHLORIDE
     Dosage: UNK, UNKNOWN
     Route: 064
     Dates: start: 20170516
  115. NICARDIPINE HYDROCHLORIDE. [Suspect]
     Active Substance: NICARDIPINE HYDROCHLORIDE
     Dosage: 50 MG, UNKNOWN
     Route: 064
     Dates: start: 20170313
  116. LABETALOL HCL [Suspect]
     Active Substance: LABETALOL HYDROCHLORIDE
     Indication: HYPERTENSION
     Dosage: 80 MG, DAILY
     Route: 064
     Dates: start: 20170516, end: 20170914
  117. PROPANOLOL HYDROCHLORIDE [Suspect]
     Active Substance: PROPRANOLOL HYDROCHLORIDE
     Indication: HYPERTENSION
     Dosage: 80 MG, DAILY
     Route: 064
     Dates: start: 20170516
  118. PROPANOLOL HYDROCHLORIDE [Suspect]
     Active Substance: PROPRANOLOL HYDROCHLORIDE
     Indication: HYPERTENSION
     Dosage: 80 MG, DAILY
     Route: 064
     Dates: start: 20170516
  119. PROPANOLOL HYDROCHLORIDE [Suspect]
     Active Substance: PROPRANOLOL HYDROCHLORIDE
     Dosage: 25 MG, DAILY
     Route: 064
     Dates: start: 20170720
  120. RAMIPRIL. [Suspect]
     Active Substance: RAMIPRIL
     Indication: HYPERTENSION
     Dosage: 2.5 MG, DAILY
     Route: 064
     Dates: start: 20160930, end: 20170224
  121. RAMIPRIL. [Suspect]
     Active Substance: RAMIPRIL
     Dosage: 2.5 MG, DAILY
     Route: 064
     Dates: start: 20170224
  122. METHYLDOPA MSD [Suspect]
     Active Substance: METHYLDOPA
     Dosage: 500 MG, DAILY
     Route: 064
     Dates: start: 20170720
  123. NICOPATCH [Suspect]
     Active Substance: NICOTINE
     Indication: EX-TOBACCO USER
     Dosage: 7 MG, DAILY
     Route: 064
     Dates: start: 20170224, end: 20170914
  124. AMOXICILLINE                       /00249603/ [Suspect]
     Active Substance: AMOXICILLIN SODIUM
     Dosage: 1 G, DAILY
     Route: 064
     Dates: start: 201708, end: 20180811
  125. GLICLAZIDE [Suspect]
     Active Substance: GLICLAZIDE
     Dosage: 120 MG, DAILY
     Route: 064
     Dates: start: 20170224
  126. METFORMIN [Suspect]
     Active Substance: METFORMIN HYDROCHLORIDE
     Indication: TYPE 2 DIABETES MELLITUS
     Dosage: 1700 MG, DAILY
     Route: 064
     Dates: start: 20160930, end: 20170224
  127. METFORMIN [Suspect]
     Active Substance: METFORMIN HYDROCHLORIDE
     Dosage: 850 MG, DAILY
     Route: 064
     Dates: start: 20170224
  128. PROPANOLOL HYDROCHLORIDE [Suspect]
     Active Substance: PROPRANOLOL HYDROCHLORIDE
     Dosage: 25 MG, DAILY
     Route: 064
     Dates: start: 20170720
  129. LANTUS [Suspect]
     Active Substance: INSULIN GLARGINE
     Indication: TYPE 2 DIABETES MELLITUS
     Dosage: 20 IU, DAILY
     Route: 064
     Dates: start: 20170224, end: 20170914
  130. FUROSEMIDE. [Suspect]
     Active Substance: FUROSEMIDE
     Dosage: 50 UNK
     Route: 065
  131. TRAMADOL HYDROCHLORIDE. [Suspect]
     Active Substance: TRAMADOL HYDROCHLORIDE
     Indication: DIABETIC NEUROPATHY
     Dosage: 100 MG, DAILY
     Route: 064
     Dates: start: 20160930, end: 20170306
  132. FORLAX [MACROGOL 4000] [Suspect]
     Active Substance: POLYETHYLENE GLYCOL 4000
     Indication: NORMOCHROMIC NORMOCYTIC ANAEMIA
     Dosage: 120 MG, DAILY
     Route: 064
     Dates: start: 20160930, end: 20170224
  133. FORLAX [MACROGOL 4000] [Suspect]
     Active Substance: POLYETHYLENE GLYCOL 4000
     Indication: TYPE 2 DIABETES MELLITUS
     Dosage: 1 DF, DAILY
     Route: 064
     Dates: start: 20170313
  134. FOLINIC ACID [Suspect]
     Active Substance: LEUCOVORIN
     Indication: NORMOCHROMIC NORMOCYTIC ANAEMIA
     Dosage: 5 MG, ONCE DAILY (QD)
     Route: 064
     Dates: start: 20170224, end: 20170313
  135. FOLINIC ACID [Suspect]
     Active Substance: LEUCOVORIN
     Dosage: 5 MG, DAILY
     Route: 064
     Dates: start: 20170224, end: 20170914
  136. INSULIN [Suspect]
     Active Substance: INSULIN NOS
     Indication: TYPE 2 DIABETES MELLITUS
     Dosage: UNK
     Route: 064
     Dates: start: 20161230, end: 20170224

REACTIONS (5)
  - Low birth weight baby [Unknown]
  - Foetal exposure during pregnancy [Recovered/Resolved]
  - Neutropenia neonatal [Not Recovered/Not Resolved]
  - Foetal disorder [Unknown]
  - Premature baby [Not Recovered/Not Resolved]

NARRATIVE: CASE EVENT DATE: 20170804
